FAERS Safety Report 16539194 (Version 1)
Quarter: 2019Q3

REPORT INFORMATION
  Report Type: Spontaneous
  Country: US (occurrence: US)
  Receive Date: 20190708
  Receipt Date: 20190708
  Transmission Date: 20191004
  Serious: No
  Sender: FDA-Public Use
  Company Number: US-MYLANLABS-2019M1056520

PATIENT
  Sex: Female
  Weight: 60.78 kg

DRUGS (1)
  1. ESTRADIOL TRANSDERMAL SYSTEM [Suspect]
     Active Substance: ESTRADIOL
     Indication: HORMONE REPLACEMENT THERAPY
     Dosage: UNK
     Route: 062

REACTIONS (6)
  - Application site burn [Recovering/Resolving]
  - Application site erythema [Recovering/Resolving]
  - Discomfort [Unknown]
  - Migraine [Unknown]
  - Product adhesion issue [Unknown]
  - Application site pruritus [Recovering/Resolving]
